FAERS Safety Report 13650085 (Version 1)
Quarter: 2017Q2

REPORT INFORMATION
  Report Type: Spontaneous
  Country: US (occurrence: US)
  Receive Date: 20170614
  Receipt Date: 20170614
  Transmission Date: 20170830
  Serious: No
  Sender: FDA-Public Use
  Company Number: US-PFIZER INC-2017254042

PATIENT
  Sex: Female

DRUGS (1)
  1. XELJANZ XR [Suspect]
     Active Substance: TOFACITINIB CITRATE
     Dosage: 11 MG, UNK

REACTIONS (10)
  - Low density lipoprotein increased [Unknown]
  - Musculoskeletal stiffness [Unknown]
  - Rash [Unknown]
  - Stress fracture [Unknown]
  - Blood glucose increased [Unknown]
  - Arthralgia [Unknown]
  - Fatigue [Unknown]
  - Joint range of motion decreased [Unknown]
  - Insomnia [Unknown]
  - Joint swelling [Unknown]
